FAERS Safety Report 6222393 (Version 3)
Quarter: 2023Q2

REPORT INFORMATION
  Report Type: Report from Study
  Country: IT (occurrence: IT)
  Receive Date: 20070124
  Receipt Date: 20230421
  Transmission Date: 20230722
  Serious: Yes (Death)
  Sender: FDA-Public Use
  Company Number: IT-PFIZER INC-2005080062

PATIENT
  Age: 69 Year
  Sex: Male
  Weight: 65 kg

DRUGS (9)
  1. SUNITINIB MALATE [Suspect]
     Active Substance: SUNITINIB MALATE
     Indication: Renal cancer metastatic
     Dosage: 50 MG, 1X/DAY
     Route: 048
     Dates: start: 20050510, end: 20050521
  2. LANSOPRAZOLE [Concomitant]
     Active Substance: LANSOPRAZOLE
     Dosage: UNK
     Route: 048
     Dates: start: 20050421, end: 20050522
  3. LASIX [Concomitant]
     Active Substance: FUROSEMIDE
     Route: 048
     Dates: start: 2002, end: 20050522
  4. VALSARTAN [Concomitant]
     Active Substance: VALSARTAN
     Dosage: UNK
     Route: 048
     Dates: start: 2002, end: 20050522
  5. MOTILIUM-M [Concomitant]
     Dosage: UNK
     Route: 048
     Dates: start: 20050421, end: 20050522
  6. GLUCOPHAGE [Concomitant]
     Active Substance: METFORMIN HYDROCHLORIDE
     Dosage: UNK
     Route: 048
     Dates: start: 1995, end: 20050522
  7. ENOXAPARIN SODIUM [Concomitant]
     Active Substance: ENOXAPARIN SODIUM
     Dosage: UNK
     Route: 058
     Dates: start: 20050426, end: 20050522
  8. FRAGMIN [Concomitant]
     Active Substance: DALTEPARIN SODIUM
     Dosage: UNK
     Route: 058
     Dates: start: 200504, end: 20050425
  9. PARAFFIN [Concomitant]
     Active Substance: PARAFFIN
     Dosage: UNK
     Route: 048
     Dates: start: 20050421, end: 20050522

REACTIONS (1)
  - Sudden death [Fatal]

NARRATIVE: CASE EVENT DATE: 20050522
